FAERS Safety Report 16205350 (Version 1)
Quarter: 2019Q2

REPORT INFORMATION
  Report Type: Spontaneous
  Country: RU (occurrence: RU)
  Receive Date: 20190417
  Receipt Date: 20190417
  Transmission Date: 20190711
  Serious: Yes (Other)
  Sender: FDA-Public Use
  Company Number: RU-ASTRAZENECA-2019SE46800

PATIENT
  Sex: Male

DRUGS (4)
  1. INDAPAMIDE. [Concomitant]
     Active Substance: INDAPAMIDE
  2. PREDNISOLONE. [Concomitant]
     Active Substance: PREDNISOLONE
  3. LISINOPRIL. [Concomitant]
     Active Substance: LISINOPRIL
  4. BRETARIS GENUAIR [Suspect]
     Active Substance: ACLIDINIUM BROMIDE
     Route: 055

REACTIONS (4)
  - Blood glucose increased [Unknown]
  - Asthma [Unknown]
  - Product dose omission [Unknown]
  - Device malfunction [Unknown]
